FAERS Safety Report 24914598 (Version 2)
Quarter: 2025Q4

REPORT INFORMATION
  Report Type: Report from Study
  Country: CA (occurrence: CA)
  Receive Date: 20250203
  Receipt Date: 20251114
  Transmission Date: 20260118
  Serious: Yes (Other)
  Sender: SANDOZ
  Company Number: CA-002147023-NVSC2022CA278416

PATIENT
  Sex: Male

DRUGS (2)
  1. ERELZI [Suspect]
     Active Substance: ETANERCEPT-SZZS
     Dosage: 50 MG, QW, 25MG/0.5ML, PRE-FILLED SYRINGE
     Route: 058
     Dates: start: 20250120
  2. ERELZI [Suspect]
     Active Substance: ETANERCEPT-SZZS
     Indication: Psoriatic arthropathy
     Dosage: 50MG, QW DOSING FREQUENCY: WEEKLY; PRE-FILLED PEN, ERELZI PEN 50 MG SOLUTION FOR INJECTION IN PRE-FI
     Route: 058
     Dates: start: 20210830

REACTIONS (8)
  - Macular degeneration [Unknown]
  - Psoriatic arthropathy [Unknown]
  - Cough [Unknown]
  - Secretion discharge [Unknown]
  - Elbow deformity [Unknown]
  - Loss of personal independence in daily activities [Unknown]
  - Injection site pain [Unknown]
  - Product dose omission issue [Unknown]
